FAERS Safety Report 4608677-2 (Version None)
Quarter: 2005Q1

REPORT INFORMATION
  Report Type: 
  Country: None (occurrence: None)
  Receive Date: 20050315
  Receipt Date: 20040726
  Transmission Date: 20050727
  Serious: Yes (Hospitalization)
  Sender: FDA-Public Use
  Company Number: DE-ROCHE-375440

PATIENT
  Age: 39 Year
  Sex: Male
  Weight: 80.9 kg

DRUGS (18)
  1. DACLIZUMAB [Suspect]
     Route: 042
     Dates: start: 20040602, end: 20040602
  2. DACLIZUMAB [Suspect]
     Route: 042
     Dates: end: 20040714
  3. MYCOPHENOLATE MOFETIL [Suspect]
     Route: 048
     Dates: start: 20040602
  4. CYCLOSPORINE [Suspect]
     Route: 048
     Dates: start: 20040602
  5. DECORTIN H [Suspect]
     Route: 048
     Dates: start: 20040602
  6. DILZEM [Concomitant]
     Route: 048
     Dates: start: 20040602
  7. PANTOPRAZOLE SODIUM [Concomitant]
     Route: 048
     Dates: start: 20040602
  8. CEFRIL [Concomitant]
     Route: 048
     Dates: start: 20040602
  9. NATRON [Concomitant]
     Route: 048
     Dates: start: 20040602
  10. L-THYROXIN 150 [Concomitant]
     Route: 048
     Dates: start: 20040602
  11. CA ACETAT [Concomitant]
     Route: 048
     Dates: start: 20040602
  12. NEBILET [Concomitant]
     Route: 048
     Dates: start: 20040602
  13. TOREM [Concomitant]
     Route: 048
     Dates: start: 20040602
  14. AQUAPHOR [Concomitant]
     Route: 048
     Dates: start: 20040602
  15. DECOSTRIOL [Concomitant]
     Route: 048
     Dates: start: 20040602
  16. VALCYTE [Concomitant]
     Route: 048
     Dates: start: 20040602
  17. NATRIUM BICARBONATE [Concomitant]
     Route: 048
     Dates: start: 20040602
  18. UNSPECIFIED DRUG [Concomitant]
     Route: 048
     Dates: start: 20040602

REACTIONS (2)
  - CYTOMEGALOVIRUS INFECTION [None]
  - URETERIC STENOSIS [None]
